FAERS Safety Report 14185553 (Version 4)
Quarter: 2018Q2

REPORT INFORMATION
  Report Type: Spontaneous
  Country: BR (occurrence: BR)
  Receive Date: 20171113
  Receipt Date: 20180411
  Transmission Date: 20180711
  Serious: Yes (Hospitalization, Other)
  Sender: FDA-Public Use
  Company Number: BR-AMGEN-BRASP2017170457

PATIENT
  Age: 59 Year
  Sex: Female

DRUGS (1)
  1. ENBREL [Suspect]
     Active Substance: ETANERCEPT
     Indication: PRODUCT USED FOR UNKNOWN INDICATION
     Dosage: UNK
     Route: 065
     Dates: start: 201707, end: 201709

REACTIONS (6)
  - Arthritis [Recovering/Resolving]
  - Gait inability [Recovering/Resolving]
  - Sepsis [Unknown]
  - Spinal disorder [Recovering/Resolving]
  - Anaemia [Unknown]
  - Localised infection [Unknown]
